FAERS Safety Report 8598028-3 (Version None)
Quarter: 2012Q3

REPORT INFORMATION
  Report Type: 
  Country: None (occurrence: None)
  Receive Date: 20120816
  Receipt Date: 20120807
  Transmission Date: 20120928
  Serious: Yes (Hospitalization)
  Sender: FDA-Public Use
  Company Number: US-BAYER-2012-080336

PATIENT
  Age: 43 Year
  Sex: Male
  Weight: 100 kg

DRUGS (8)
  1. TENORMIN [Concomitant]
  2. HYDROCHLOROTHIAZIDE [Concomitant]
  3. PRILOSEC [Concomitant]
  4. SORAFENIB VS SUNITINIB VS PLACEBO IN LOC.ADVANCED RENAL CELL CARCI [Suspect]
     Indication: RENAL CELL CARCINOMA
     Dosage: 400 MG BID DAILY (CYCLE = 42 DAYS)
     Route: 048
     Dates: start: 20070124, end: 20080111
  5. SUNITINIB MALATE [Suspect]
     Indication: RENAL CELL CARCINOMA
     Dosage: 50 MG DAILY, WEEKS 1-4 (CYCLE = 42 DAYS)
     Route: 048
     Dates: start: 20070124, end: 20080111
  6. CRESTOR [Concomitant]
  7. POTASSIUM [Concomitant]
  8. LAXATIVES [Concomitant]

REACTIONS (4)
  - LEUKAEMIA [None]
  - BLOOD CHOLESTEROL INCREASED [None]
  - HYPOTHYROIDISM [None]
  - HYPERTRIGLYCERIDAEMIA [None]
